FAERS Safety Report 16279631 (Version 2)
Quarter: 2019Q2

REPORT INFORMATION
  Report Type: Spontaneous
  Country: CA (occurrence: CA)
  Receive Date: 20190507
  Receipt Date: 20190530
  Transmission Date: 20190711
  Serious: Yes (Life-Threatening, Hospitalization, Other)
  Sender: FDA-Public Use
  Company Number: CA-LUPIN PHARMACEUTICALS INC.-2019-02679

PATIENT
  Age: 40 Year
  Sex: Female

DRUGS (2)
  1. LEVONORGESTREL. [Suspect]
     Active Substance: LEVONORGESTREL
     Indication: CONTRACEPTION
     Dosage: UNK (INTRAUTERINE DEVICE)
     Route: 015
  2. LEVONORGESTREL. [Suspect]
     Active Substance: LEVONORGESTREL
     Indication: UTERINE HAEMORRHAGE

REACTIONS (3)
  - Sepsis [Recovering/Resolving]
  - Beta haemolytic streptococcal infection [Recovering/Resolving]
  - Toxic shock syndrome streptococcal [Recovering/Resolving]
